FAERS Safety Report 23358436 (Version 1)
Quarter: 2024Q1

REPORT INFORMATION
  Report Type: Spontaneous
  Country: FR (occurrence: FR)
  Receive Date: 20240102
  Receipt Date: 20240102
  Transmission Date: 20240410
  Serious: Yes (Death)
  Sender: FDA-Public Use
  Company Number: None

PATIENT

DRUGS (3)
  1. XCOPRI [Suspect]
     Active Substance: CENOBAMATE
     Indication: Epilepsy
     Dosage: 12.5 MILLIGRAM, QD
     Route: 048
     Dates: start: 20231129
  2. BRIVIACT [Suspect]
     Active Substance: BRIVARACETAM
     Indication: Epilepsy
     Dosage: 100 MG MORNING AND EVENING
     Route: 048
     Dates: start: 202112, end: 20231204
  3. VIMPAT [Suspect]
     Active Substance: LACOSAMIDE
     Indication: Epilepsy
     Dosage: 200 MG IN THE MORNING AND 150 MG IN THE EVENING
     Route: 048
     Dates: start: 202112, end: 20231204

REACTIONS (2)
  - Drug ineffective [Fatal]
  - Epilepsy [Fatal]

NARRATIVE: CASE EVENT DATE: 20231204
